FAERS Safety Report 9182346 (Version 1)
Quarter: 2012Q4

REPORT INFORMATION
  Report Type: Report from Study
  Country: JP (occurrence: JP)
  Receive Date: 20121030
  Receipt Date: 20121030
  Transmission Date: 20130627
  Serious: Yes (Other)
  Sender: FDA-Public Use
  Company Number: JP-VERTEX PHARMACEUTICAL INC.-2012-023661

PATIENT
  Age: 62 Year
  Sex: Female

DRUGS (9)
  1. VX-950 [Suspect]
     Indication: HEPATITIS C
     Dosage: 2250 mg, qd
     Route: 048
     Dates: start: 20120712, end: 20120912
  2. RIBAVIRIN [Suspect]
     Indication: HEPATITIS C
     Dosage: 1000 mg, qd
     Route: 048
     Dates: start: 20120712, end: 20120725
  3. RIBAVIRIN [Suspect]
     Dosage: 400 mg, qd
     Route: 048
     Dates: start: 20120726, end: 20120801
  4. RIBAVIRIN [Suspect]
     Dosage: 200 mg, qd
     Route: 048
     Dates: start: 20120802, end: 20120912
  5. PEGINTERFERON ALFA-2B [Suspect]
     Indication: HEPATITIS C
     Dosage: 120 �g, UNK
     Route: 058
     Dates: start: 20120712, end: 20120904
  6. PEGINTERFERON ALFA-2B [Suspect]
     Dosage: 100 �g, UNK
     Route: 058
     Dates: start: 20120905, end: 20120912
  7. AVAPRO [Concomitant]
     Dosage: 100 mg, qd
     Route: 048
  8. AMLODIN [Concomitant]
     Dosage: 5 mg, qd
     Route: 048
  9. FOSAMAC [Concomitant]
     Dosage: 35 mg, qd
     Route: 048
     Dates: end: 20120912

REACTIONS (1)
  - Retinopathy [Recovered/Resolved]
